FAERS Safety Report 9312972 (Version 1)
Quarter: 2013Q2

REPORT INFORMATION
  Report Type: Spontaneous
  Country: US (occurrence: US)
  Receive Date: 20130528
  Receipt Date: 20130528
  Transmission Date: 20140414
  Serious: No
  Sender: FDA-Public Use
  Company Number: US-ABBOTT-13P-163-1080910-00

PATIENT
  Age: 46 Year
  Sex: Male
  Weight: 145.28 kg

DRUGS (7)
  1. ANDROGEL [Suspect]
     Indication: BLOOD TESTOSTERONE DECREASED
     Dosage: 2 PUMPS
     Route: 061
     Dates: start: 201203, end: 20130422
  2. ANDROGEL [Suspect]
     Dosage: 3 PUMPS
     Route: 061
     Dates: start: 20130422
  3. OXYCONTIN [Concomitant]
     Indication: BACK PAIN
  4. SYNTHROID [Concomitant]
     Indication: HYPOTHYROIDISM
  5. CYTOMEL [Concomitant]
     Indication: HYPOTHYROIDISM
  6. LISINOPRIL [Concomitant]
     Indication: HYPERTENSION
  7. FLONASE [Concomitant]
     Indication: SEASONAL ALLERGY

REACTIONS (2)
  - Lethargy [Not Recovered/Not Resolved]
  - Blood testosterone decreased [Not Recovered/Not Resolved]
